FAERS Safety Report 4960534-8 (Version None)
Quarter: 2006Q1

REPORT INFORMATION
  Report Type: 
  Country: None (occurrence: None)
  Receive Date: 20060331
  Receipt Date: 20060331
  Transmission Date: 20060701
  Serious: Yes (Other)
  Sender: FDA-Public Use
  Company Number: None

PATIENT
  Age: 54 Year
  Sex: Female
  Weight: 65.7716 kg

DRUGS (1)
  1. LUNESTA [Suspect]
     Indication: INSOMNIA
     Dosage: 1 AT BEDTIME   DAILY  PO
     Route: 048
     Dates: start: 20050601, end: 20050616

REACTIONS (8)
  - ALCOHOL USE [None]
  - ASTHENIA [None]
  - DIZZINESS [None]
  - DYSPNOEA [None]
  - FEELING DRUNK [None]
  - HYPERHIDROSIS [None]
  - MALAISE [None]
  - VISION BLURRED [None]
